FAERS Safety Report 8850731 (Version 3)
Quarter: 2012Q4

REPORT INFORMATION
  Report Type: 
  Country: US (occurrence: US)
  Receive Date: 20121019
  Receipt Date: 20121106
  Transmission Date: 20130627
  Serious: Yes (Life-Threatening, Other)
  Sender: FDA-Public Use
  Company Number: US-TEVA-365154USA

PATIENT
  Age: 66 Year
  Sex: Female

DRUGS (2)
  1. COPAXONE [Suspect]
     Indication: MULTIPLE SCLEROSIS
     Route: 058
     Dates: start: 20071015, end: 2012
  2. AMPYRA [Suspect]
     Dosage: 20 Milligram Daily;
     Dates: start: 20120506

REACTIONS (11)
  - Apnoea [Unknown]
  - Hyperventilation [Unknown]
  - Foaming at mouth [Unknown]
  - Dysphagia [Unknown]
  - Vertigo [Recovered/Resolved]
  - Syncope [Recovered/Resolved]
  - Feeling cold [Unknown]
  - Dizziness [Unknown]
  - Nausea [Unknown]
  - Diarrhoea [Unknown]
  - Feeling abnormal [Unknown]
